FAERS Safety Report 18054337 (Version 1)
Quarter: 2020Q3

REPORT INFORMATION
  Report Type: Spontaneous
  Country: US (occurrence: US)
  Receive Date: 20200722
  Receipt Date: 20200722
  Transmission Date: 20201103
  Serious: No
  Sender: FDA-Public Use
  Company Number: US-ASTRAZENECA-2020SE81619

PATIENT
  Sex: Female

DRUGS (8)
  1. GENERIC KEPRA [Concomitant]
  2. TRIHEXYPHENIDYL [Concomitant]
     Active Substance: TRIHEXYPHENIDYL
  3. DIAZEPAM. [Concomitant]
     Active Substance: DIAZEPAM
     Dates: start: 202005
  4. CLONIDINE. [Concomitant]
     Active Substance: CLONIDINE
     Indication: MUSCLE SPASMS
     Dosage: AS REQUIRED
  5. GABAPENTIN. [Concomitant]
     Active Substance: GABAPENTIN
  6. BACLOFEN. [Concomitant]
     Active Substance: BACLOFEN
  7. NEXIUM [Suspect]
     Active Substance: ESOMEPRAZOLE MAGNESIUM
     Dosage: 40.0MG UNKNOWN
     Route: 050
     Dates: start: 201909
  8. PULMICORT RESPULES [Suspect]
     Active Substance: BUDESONIDE
     Route: 055

REACTIONS (1)
  - Discoloured vomit [Unknown]
